FAERS Safety Report 10206919 (Version 1)
Quarter: 2014Q2

REPORT INFORMATION
  Report Type: Spontaneous
  Country: US (occurrence: US)
  Receive Date: 20140530
  Receipt Date: 20140530
  Transmission Date: 20141212
  Serious: No
  Sender: FDA-Public Use
  Company Number: US-009507513-1106USA02674

PATIENT
  Age: 93 Year
  Sex: Female

DRUGS (2)
  1. TRUSOPT [Suspect]
     Indication: INTRAOCULAR PRESSURE TEST
     Dosage: 6 GTT, QD
     Route: 047
     Dates: start: 1990
  2. TIMOPTIC [Suspect]
     Route: 047

REACTIONS (1)
  - Eye irritation [Not Recovered/Not Resolved]
